FAERS Safety Report 7873501 (Version 2)
Quarter: 2013Q3

REPORT INFORMATION
  Report Type: Spontaneous
  Country: US (occurrence: US)
  Receive Date: 20110328
  Receipt Date: 20130715
  Transmission Date: 20140515
  Serious: No
  Sender: FDA-Public Use
  Company Number: US-B.I. PHARMACEUTICALS,INC./RIDGEFIELD-2011-BP-07214BP

PATIENT
  Age: 88 Year
  Sex: Male

DRUGS (7)
  1. CATAPRES TABLETS [Suspect]
     Indication: HYPERTENSION
     Dosage: 0.8 MG
     Route: 048
     Dates: start: 1980
  2. CATAPRES TABLETS [Suspect]
     Indication: HYPERTENSION
     Dosage: 0.8 MG
     Route: 048
     Dates: start: 1980
  3. DIOVAN [Concomitant]
     Indication: HYPERTENSION
     Dosage: 160 MG
     Route: 048
  4. LIPITOR [Concomitant]
     Indication: BLOOD CHOLESTEROL INCREASED
     Dosage: 10 MG
     Route: 048
  5. TIMOLOL EYE DROPS [Concomitant]
     Indication: GLAUCOMA
     Dosage: STRENGHT : 0.5% DAILY DOSE : 2 DROPS EACH EYE
  6. LATANOPROST OPTHALMIC SOLUTION [Concomitant]
     Indication: GLAUCOMA
     Dosage: STRENGTH: 0.005% DAILY DOSE : 1 DROP EACH EYE
  7. ASPIRIN [Concomitant]
     Dosage: 81 MG
     Route: 048

REACTIONS (3)
  - Blood pressure inadequately controlled [Unknown]
  - Blood pressure increased [Not Recovered/Not Resolved]
  - Hypertension [Not Recovered/Not Resolved]
